FAERS Safety Report 20947403 (Version 4)
Quarter: 2022Q3

REPORT INFORMATION
  Report Type: Report from Study
  Country: SE (occurrence: SE)
  Receive Date: 20220610
  Receipt Date: 20220930
  Transmission Date: 20221027
  Serious: Yes (Hospitalization, Other)
  Sender: FDA-Public Use
  Company Number: SE-ABBVIE-22K-150-4424667-00

PATIENT
  Age: 76 Year
  Sex: Female

DRUGS (2)
  1. CARBIDOPA\LEVODOPA [Suspect]
     Active Substance: CARBIDOPA\LEVODOPA
     Indication: Parkinson^s disease
     Dosage: RESTARTED IN THE MIDDLE OF AUG-2022
     Route: 050
     Dates: start: 202208
  2. CARBIDOPA\LEVODOPA [Suspect]
     Active Substance: CARBIDOPA\LEVODOPA
     Dosage: THERAPY DURATION: REMAINS AT 24H
     Route: 050
     Dates: start: 20220329, end: 2022

REACTIONS (10)
  - Mesenteric vascular insufficiency [Unknown]
  - Intestinal perforation [Unknown]
  - Vomiting [Not Recovered/Not Resolved]
  - Nausea [Not Recovered/Not Resolved]
  - Ileus [Unknown]
  - Stoma site discharge [Not Recovered/Not Resolved]
  - Constipation [Unknown]
  - Gastrostomy [Recovering/Resolving]
  - Device kink [Unknown]
  - Pain [Unknown]

NARRATIVE: CASE EVENT DATE: 20220601
